FAERS Safety Report 6985968-1 (Version None)
Quarter: 2010Q3

REPORT INFORMATION
  Report Type: 
  Country: None (occurrence: None)
  Receive Date: 20100915
  Receipt Date: 20100907
  Transmission Date: 20110219
  Serious: Yes (Hospitalization)
  Sender: FDA-Public Use
  Company Number: US-GENENTECH-306301

PATIENT
  Sex: Male

DRUGS (1)
  1. RITUXAN [Suspect]
     Indication: CASTLEMAN'S DISEASE
     Dosage: UNK
     Route: 042
     Dates: start: 20100903

REACTIONS (2)
  - PLATELET COUNT DECREASED [None]
  - PULMONARY OEDEMA [None]
